FAERS Safety Report 12374427 (Version 1)
Quarter: 2016Q2

REPORT INFORMATION
  Report Type: Spontaneous
  Country: US (occurrence: None)
  Receive Date: 20160516
  Receipt Date: 20160516
  Transmission Date: 20160815
  Serious: No
  Sender: FDA-Public Use
  Company Number: None

PATIENT
  Age: 36 Year
  Sex: Female
  Weight: 94.8 kg

DRUGS (2)
  1. PRENATAL VITAMIN [Concomitant]
     Active Substance: VITAMINS
  2. PITOCIN [Suspect]
     Active Substance: OXYTOCIN
     Indication: ABNORMAL LABOUR
     Dosage: 30 UNITS EVERY 20-30 MINS INTO A VEIN
     Route: 042
     Dates: start: 20151115, end: 20151115

REACTIONS (3)
  - Jaundice neonatal [None]
  - Postpartum haemorrhage [None]
  - Amnesia [None]

NARRATIVE: CASE EVENT DATE: 20151115
